FAERS Safety Report 8583465-3 (Version None)
Quarter: 2012Q3

REPORT INFORMATION
  Report Type: 
  Country: None (occurrence: None)
  Receive Date: 20120809
  Receipt Date: 20120803
  Transmission Date: 20120928
  Serious: Yes (Other)
  Sender: FDA-Public Use
  Company Number: US-BAYER-2012-068989

PATIENT
  Age: 28 Year
  Sex: Female
  Weight: 129.25 kg

DRUGS (5)
  1. SIMVASTATIN [Concomitant]
     Dosage: 10 MG, UNK
  2. ZOLOFT [Concomitant]
     Dosage: 100 MG, UNK
  3. MIRENA [Suspect]
     Indication: CONTRACEPTION
     Dosage: 20 MCG/24HR, CONT
     Route: 015
     Dates: start: 20120605, end: 20120625
  4. XANAX [Concomitant]
     Dosage: 25 MG, PRN
  5. METFORMIN HYDROCHLORIDE [Concomitant]
     Dosage: 500 MG, UNK

REACTIONS (2)
  - GENITAL HAEMORRHAGE [None]
  - DEVICE EXPULSION [None]
